FAERS Safety Report 12993212 (Version 1)
Quarter: 2016Q4

REPORT INFORMATION
  Report Type: Spontaneous
  Country: GB (occurrence: GB)
  Receive Date: 20161202
  Receipt Date: 20161202
  Transmission Date: 20170207
  Serious: Yes (Hospitalization, Disabling)
  Sender: FDA-Public Use
  Company Number: GB-CIPLA LTD.-2016GB22621

PATIENT
  Age: 68 Year
  Sex: Female

DRUGS (2)
  1. PRIADEL [Concomitant]
     Active Substance: LITHIUM CARBONATE
     Dosage: 20 ML, QD, EVERY EVENING, 520MG/5ML SUGAR FREE
     Route: 065
  2. OLANZAPINE. [Suspect]
     Active Substance: OLANZAPINE
     Dosage: VIALS
     Route: 030
     Dates: start: 20140611

REACTIONS (8)
  - Restlessness [Recovered/Resolved]
  - Dysarthria [Recovered/Resolved]
  - Overdose [Recovered/Resolved]
  - Asthenia [Recovered/Resolved]
  - Confusional state [Recovered/Resolved]
  - Speech disorder [Recovered/Resolved]
  - Agitation [Recovered/Resolved]
  - Facial paralysis [Recovered/Resolved]

NARRATIVE: CASE EVENT DATE: 20161102
